FAERS Safety Report 22166331 (Version 1)
Quarter: 2023Q2

REPORT INFORMATION
  Report Type: Spontaneous
  Country: FR (occurrence: FR)
  Receive Date: 20230403
  Receipt Date: 20230403
  Transmission Date: 20230721
  Serious: Yes (Hospitalization, Other)
  Sender: FDA-Public Use
  Company Number: None

PATIENT
  Age: 77 Year
  Sex: Female

DRUGS (4)
  1. EXEMESTANE [Suspect]
     Active Substance: EXEMESTANE
     Indication: Hormone receptor positive breast cancer
     Dosage: 25 MG, 1X/DAY
     Route: 048
     Dates: start: 201911, end: 202203
  2. FOSAVANCE [Suspect]
     Active Substance: ALENDRONATE SODIUM\CHOLECALCIFEROL
     Indication: Osteoporotic fracture
     Dosage: UNK
     Dates: start: 2006, end: 202106
  3. PROLIA [Suspect]
     Active Substance: DENOSUMAB
     Indication: Osteoporotic fracture
     Dosage: 60 MG EVERY 6 MONTHS
     Route: 058
     Dates: start: 202106
  4. RAMIPRIL [Suspect]
     Active Substance: RAMIPRIL
     Indication: Hypertension
     Dosage: 5 MG, 1X/DAY IN THE EVENING
     Route: 048
     Dates: start: 202106, end: 202303

REACTIONS (1)
  - Ischaemic stroke [Recovering/Resolving]

NARRATIVE: CASE EVENT DATE: 20230309
